FAERS Safety Report 5599685-6 (Version None)
Quarter: 2008Q1

REPORT INFORMATION
  Report Type: 
  Country: None (occurrence: None)
  Receive Date: 20080118
  Receipt Date: 20080118
  Transmission Date: 20080703
  Serious: No
  Sender: FDA-Public Use
  Company Number: None

PATIENT
  Age: 66 Year
  Sex: Female
  Weight: 52 kg

DRUGS (1)
  1. MILRINONE [Suspect]
     Indication: WRONG DRUG ADMINISTERED
     Dosage: 0.96MCG/KG/MIN IV
     Route: 042
     Dates: start: 20071228

REACTIONS (2)
  - HYPOTENSION [None]
  - WRONG DRUG ADMINISTERED [None]
